FAERS Safety Report 6414769-8 (Version None)
Quarter: 2009Q4

REPORT INFORMATION
  Report Type: 
  Country: None (occurrence: None)
  Receive Date: 20091026
  Receipt Date: 20091026
  Transmission Date: 20100525
  Serious: Yes (Hospitalization)
  Sender: FDA-Public Use
  Company Number: None

PATIENT
  Sex: Female
  Weight: 64.8644 kg

DRUGS (2)
  1. KAPIDEX [Suspect]
     Indication: BARRETT'S OESOPHAGUS
     Dates: start: 20091007, end: 20091009
  2. KAPIDEX [Suspect]
     Indication: GASTRITIS
     Dates: start: 20091007, end: 20091009

REACTIONS (4)
  - ABDOMINAL PAIN UPPER [None]
  - CHEST PAIN [None]
  - OESOPHAGEAL PAIN [None]
  - PAIN [None]
